FAERS Safety Report 9253157 (Version 1)
Quarter: 2013Q2

REPORT INFORMATION
  Report Type: Report from Study
  Country: US (occurrence: US)
  Receive Date: 20130424
  Receipt Date: 20130424
  Transmission Date: 20140414
  Serious: Yes (Hospitalization)
  Sender: FDA-Public Use
  Company Number: US-ACTELION-A-US2011-55669

PATIENT
  Age: 51 Year
  Sex: Female

DRUGS (9)
  1. VELETRI [Suspect]
     Indication: PULMONARY ARTERIAL HYPERTENSION
     Dosage: 26 NG/KG, PER MIN
     Route: 042
     Dates: start: 20100811
  2. TRACLEER [Suspect]
     Indication: PULMONARY ARTERIAL HYPERTENSION
     Dosage: UNK
     Route: 048
     Dates: start: 20080729, end: 20111020
  3. REVATIO [Concomitant]
  4. COUMADIN [Concomitant]
  5. SPIRONOLACTONE [Concomitant]
     Dosage: UNK
     Dates: start: 20090827
  6. TORASEMIDE [Concomitant]
     Dosage: UNK
     Dates: start: 20110420
  7. WARFARIN [Concomitant]
     Dosage: UNK
     Dates: start: 20110729
  8. METHIMAZOLE [Concomitant]
     Dosage: UNK
     Dates: start: 20110928
  9. LEVEMIR [Concomitant]

REACTIONS (14)
  - Basedow^s disease [Recovered/Resolved]
  - Thyroidectomy [Recovered/Resolved]
  - Parathyroid gland operation [Recovered/Resolved]
  - Generalised oedema [Recovered/Resolved with Sequelae]
  - Condition aggravated [Recovered/Resolved with Sequelae]
  - Fluid retention [Recovered/Resolved with Sequelae]
  - Oedema peripheral [Recovered/Resolved with Sequelae]
  - Dyspnoea [Recovered/Resolved with Sequelae]
  - Hyperthyroidism [Recovered/Resolved]
  - Pharyngeal operation [Recovered/Resolved]
  - Pleural effusion [Recovered/Resolved with Sequelae]
  - Aspiration pleural cavity [Recovered/Resolved with Sequelae]
  - Weight increased [Recovered/Resolved with Sequelae]
  - Dyspnoea [Recovered/Resolved with Sequelae]
